FAERS Safety Report 12536639 (Version 2)
Quarter: 2016Q3

REPORT INFORMATION
  Report Type: Spontaneous
  Country: FR (occurrence: FR)
  Receive Date: 20160707
  Receipt Date: 20160826
  Transmission Date: 20161109
  Serious: Yes (Hospitalization)
  Sender: FDA-Public Use
  Company Number: FR-ASTRAZENECA-2016SE72395

PATIENT
  Age: 24601 Day
  Sex: Male

DRUGS (9)
  1. RITUXIMAB [Suspect]
     Active Substance: RITUXIMAB
     Indication: NON-HODGKIN^S LYMPHOMA
     Dosage: 750.0MG UNKNOWN
     Route: 042
     Dates: start: 20160512, end: 20160512
  2. CRESTOR [Suspect]
     Active Substance: ROSUVASTATIN CALCIUM
     Route: 048
  3. DOLIPRANE [Suspect]
     Active Substance: ACETAMINOPHEN
     Route: 065
  4. BENDAMUSTINE [Suspect]
     Active Substance: BENDAMUSTINE
     Indication: NON-HODGKIN^S LYMPHOMA
     Dosage: 180.0MG UNKNOWN
     Route: 042
     Dates: start: 20160512, end: 20160512
  5. MONO-TILDIEM [Suspect]
     Active Substance: DILTIAZEM HYDROCHLORIDE
     Route: 065
  6. VERATRAN [Suspect]
     Active Substance: CLOTIAZEPAM
     Route: 065
  7. KARDEGIC [Suspect]
     Active Substance: ASPIRIN LYSINE
     Route: 065
  8. METFORMINE [Suspect]
     Active Substance: METFORMIN HYDROCHLORIDE
     Route: 065
  9. TAREG [Suspect]
     Active Substance: VALSARTAN
     Route: 065

REACTIONS (3)
  - Pyrexia [Recovered/Resolved]
  - Lymphopenia [Unknown]
  - Anaemia [Unknown]

NARRATIVE: CASE EVENT DATE: 20160515
